FAERS Safety Report 24657604 (Version 2)
Quarter: 2025Q2

REPORT INFORMATION
  Report Type: Report from Study
  Country: US (occurrence: US)
  Receive Date: 20241125
  Receipt Date: 20250424
  Transmission Date: 20250716
  Serious: Yes (Hospitalization, Other)
  Sender: ABBVIE
  Company Number: US-ABBVIE-5991666

PATIENT
  Age: 58 Year
  Sex: Female
  Weight: 74.842 kg

DRUGS (2)
  1. SKYRIZI [Suspect]
     Active Substance: RISANKIZUMAB-RZAA
     Indication: Psoriasis
     Dosage: UNKNOWN
     Route: 058
     Dates: start: 202306
  2. OCREVUS [Concomitant]
     Active Substance: OCRELIZUMAB
     Indication: Multiple sclerosis

REACTIONS (4)
  - Pneumonia [Recovered/Resolved]
  - Chest discomfort [Unknown]
  - Rales [Recovered/Resolved]
  - Pruritus [Unknown]

NARRATIVE: CASE EVENT DATE: 20240101
